FAERS Safety Report 8248719-9 (Version None)
Quarter: 2012Q1

REPORT INFORMATION
  Report Type: 
  Country: None (occurrence: None)
  Receive Date: 20120331
  Receipt Date: 20120326
  Transmission Date: 20120608
  Serious: Yes (Death, Hospitalization)
  Sender: FDA-Public Use
  Company Number: PHHO2012US004931

PATIENT
  Sex: Female
  Weight: 62.7 kg

DRUGS (3)
  1. CERTICAN [Suspect]
     Indication: RENAL TRANSPLANT
     Dosage: 0.75 MG, UNK
     Route: 048
     Dates: start: 20101121, end: 20101130
  2. CERTICAN [Suspect]
     Dosage: 1.5 MG, UNK
     Route: 048
     Dates: start: 20101201
  3. TACROLIMUS [Concomitant]
     Indication: RENAL TRANSPLANT
     Dosage: 3 MG AM + 4 MG PM, QD
     Route: 048
     Dates: start: 20110214, end: 20120107

REACTIONS (1)
  - ARTERIOSCLEROSIS [None]
